FAERS Safety Report 25899711 (Version 3)
Quarter: 2025Q4

REPORT INFORMATION
  Report Type: Spontaneous
  Country: JP (occurrence: JP)
  Receive Date: 20251009
  Receipt Date: 20251110
  Transmission Date: 20260117
  Serious: Yes (Other)
  Sender: RIGEL PHARMACEUTICALS
  Company Number: JP-KISSEI-TL20250809

PATIENT
  Age: 50 Year
  Sex: Male

DRUGS (20)
  1. TAVALISSE [Suspect]
     Active Substance: FOSTAMATINIB
     Indication: Immune thrombocytopenia
     Dosage: 200MG, QD
     Route: 048
     Dates: start: 202412
  2. TAVALISSE [Suspect]
     Active Substance: FOSTAMATINIB
     Dosage: 200 MG, QD
     Route: 048
  3. TAVALISSE [Suspect]
     Active Substance: FOSTAMATINIB
     Dosage: 100 MG, QD
     Route: 048
  4. TAVALISSE [Suspect]
     Active Substance: FOSTAMATINIB
     Dosage: 200 MG. QD
     Route: 048
  5. ROMIPLOSTIM [Concomitant]
     Active Substance: ROMIPLOSTIM
     Indication: Immune thrombocytopenia
     Dosage: 80 MCG, QD
     Route: 058
  6. ROMIPLOSTIM [Concomitant]
     Active Substance: ROMIPLOSTIM
     Dosage: 160 MCG, QD
     Route: 058
  7. ROMIPLOSTIM [Concomitant]
     Active Substance: ROMIPLOSTIM
     Dosage: 320 MCG, QD
     Route: 058
  8. ROMIPLOSTIM [Concomitant]
     Active Substance: ROMIPLOSTIM
     Dosage: 400 MCG, QD
     Route: 058
  9. ROMIPLOSTIM [Concomitant]
     Active Substance: ROMIPLOSTIM
     Dosage: 480 MCG, QD
     Route: 058
  10. PREDNISOLONE [Concomitant]
     Active Substance: PREDNISOLONE
     Indication: Product used for unknown indication
     Dosage: 80 MG, QD
     Route: 065
  11. PREDNISOLONE [Concomitant]
     Active Substance: PREDNISOLONE
     Dosage: 60 MG, QD
     Route: 065
  12. PREDNISOLONE [Concomitant]
     Active Substance: PREDNISOLONE
     Dosage: 30 MG, QD
     Route: 065
  13. PREDNISOLONE [Concomitant]
     Active Substance: PREDNISOLONE
     Dosage: 20 MG, QD
     Route: 065
  14. PREDNISOLONE [Concomitant]
     Active Substance: PREDNISOLONE
     Dosage: 15 MG, QD
     Route: 065
  15. PREDNISOLONE [Concomitant]
     Active Substance: PREDNISOLONE
     Dosage: 10 MG, QD
     Route: 065
  16. PREDNISOLONE [Concomitant]
     Active Substance: PREDNISOLONE
     Dosage: 5 MG, QD
     Route: 065
  17. HUMAN RED BLOOD CELL [Concomitant]
     Active Substance: HUMAN RED BLOOD CELL
     Indication: Product used for unknown indication
     Dosage: UNK
     Route: 041
  18. FRESH-FROZEN HUMAN PLASMA [Concomitant]
     Indication: Product used for unknown indication
     Dosage: UNK
     Route: 041
  19. VALSARTAN [Concomitant]
     Active Substance: VALSARTAN
     Indication: Product used for unknown indication
     Dosage: UNK
     Route: 048
  20. AMLODIPINE [Concomitant]
     Active Substance: AMLODIPINE BESYLATE
     Indication: Product used for unknown indication
     Dosage: UNK
     Route: 048

REACTIONS (2)
  - Intra-abdominal haemorrhage [Unknown]
  - Shock haemorrhagic [Unknown]
